FAERS Safety Report 4794998-X (Version None)
Quarter: 2005Q4

REPORT INFORMATION
  Report Type: 
  Country: None (occurrence: None)
  Receive Date: 20051006
  Receipt Date: 20050927
  Transmission Date: 20060501
  Serious: Yes (Other)
  Sender: FDA-Public Use
  Company Number: 2005JP001720

PATIENT
  Age: 58 Year
  Sex: Female

DRUGS (2)
  1. FUNGUARD (MICAFUNGIN) INJECTION [Suspect]
     Indication: ASPERGILLOSIS
     Dosage: 150.00 MG /D, IV DRIP
     Route: 041
     Dates: start: 20050820, end: 20050828
  2. CLARITH (CLARITHROMYCIN) [Concomitant]

REACTIONS (1)
  - TOXIC SKIN ERUPTION [None]
